FAERS Safety Report 8116020-X (Version None)
Quarter: 2012Q1

REPORT INFORMATION
  Report Type: 
  Country: None (occurrence: None)
  Receive Date: 20120118
  Receipt Date: 20120103
  Transmission Date: 20120608
  Serious: Yes (Hospitalization, Other)
  Sender: FDA-Public Use
  Company Number: 2011PROUSA00898

PATIENT
  Age: 69 Year
  Sex: Male

DRUGS (1)
  1. PROVENGE [Suspect]
     Indication: PROSTATE CANCER METASTATIC
     Dosage: 250 ML SINGLE, INTRAVENOUS
     Route: 042
     Dates: start: 20111209, end: 20111209

REACTIONS (3)
  - CULTURE POSITIVE [None]
  - TERMINAL STATE [None]
  - MALAISE [None]
